FAERS Safety Report 19706515 (Version 1)
Quarter: 2021Q3

REPORT INFORMATION
  Report Type: Report from Study
  Country: TW (occurrence: TW)
  Receive Date: 20210817
  Receipt Date: 20210817
  Transmission Date: 20211014
  Serious: Yes (Other)
  Sender: FDA-Public Use
  Company Number: TW-GLAXOSMITHKLINE-TW2021APC171845

PATIENT
  Age: 52 Year
  Sex: Male

DRUGS (1)
  1. MEPOLIZUMAB [Suspect]
     Active Substance: MEPOLIZUMAB
     Indication: PRODUCT USED FOR UNKNOWN INDICATION
     Dosage: UNK
     Dates: start: 20200110

REACTIONS (3)
  - Chest injury [Unknown]
  - Fall [Unknown]
  - Painful respiration [Not Recovered/Not Resolved]

NARRATIVE: CASE EVENT DATE: 20210805
